FAERS Safety Report 5892586-5 (Version None)
Quarter: 2008Q3

REPORT INFORMATION
  Report Type: 
  Country: None (occurrence: None)
  Receive Date: 20080923
  Receipt Date: 20080911
  Transmission Date: 20090109
  Serious: Yes (Hospitalization, Other)
  Sender: FDA-Public Use
  Company Number: DK-ROCHE-550757

PATIENT
  Sex: Female
  Weight: 64 kg

DRUGS (8)
  1. CELLCEPT [Suspect]
     Indication: GLOMERULONEPHRITIS MEMBRANOPROLIFERATIVE
     Route: 048
     Dates: start: 20071009, end: 20080115
  2. CELLCEPT [Suspect]
     Route: 048
     Dates: start: 20080801
  3. PERSANTINE [Concomitant]
     Indication: GLOMERULONEPHRITIS MEMBRANOPROLIFERATIVE
     Dosage: FORM REPORTED AS CAPSULE, HARD.
     Route: 048
     Dates: start: 20071009, end: 20071218
  4. PREDNISOLON [Concomitant]
     Indication: GLOMERULONEPHRITIS MEMBRANOPROLIFERATIVE
     Dosage: REPORTED AS: PREDNISOLON DAK.
     Route: 048
     Dates: start: 20071009
  5. HJERTEMAGNYL [Concomitant]
     Indication: GLOMERULONEPHRITIS MEMBRANOPROLIFERATIVE
     Route: 048
     Dates: start: 20071009
  6. RAMIPRIL [Concomitant]
     Indication: GLOMERULONEPHRITIS MEMBRANOPROLIFERATIVE
     Route: 048
     Dates: start: 20070828
  7. CENTYL [Concomitant]
     Indication: NEPHROTIC SYNDROME
     Route: 048
     Dates: start: 20070709
  8. ZOCOR [Concomitant]
     Indication: NEPHROTIC SYNDROME
     Route: 048
     Dates: start: 20070924

REACTIONS (6)
  - ARTHROPATHY [None]
  - ASTHENIA [None]
  - COUGH [None]
  - FATIGUE [None]
  - INFLAMMATION [None]
  - RHINORRHOEA [None]
